FAERS Safety Report 23895288 (Version 1)
Quarter: 2024Q2

REPORT INFORMATION
  Report Type: Spontaneous
  Country: MD (occurrence: MD)
  Receive Date: 20240524
  Receipt Date: 20240524
  Transmission Date: 20240715
  Serious: Yes (Life-Threatening, Hospitalization)
  Sender: FDA-Public Use
  Company Number: MD-MACLEODS PHARMA-MAC2024047337

PATIENT

DRUGS (3)
  1. PYRAZINAMIDE [Suspect]
     Active Substance: PYRAZINAMIDE
     Indication: Pulmonary tuberculosis
     Dosage: 1 PER 1 DAY
     Route: 048
     Dates: start: 20240212, end: 20240306
  2. ISONIAZID [Concomitant]
     Active Substance: ISONIAZID
     Indication: Tuberculosis
     Route: 048
     Dates: start: 20240201
  3. RIFAMPIN [Concomitant]
     Active Substance: RIFAMPIN
     Indication: Tuberculosis
     Route: 048
     Dates: start: 20240201

REACTIONS (1)
  - Transaminases increased [Unknown]

NARRATIVE: CASE EVENT DATE: 20240306
